FAERS Safety Report 5080203-6 (Version None)
Quarter: 2006Q3

REPORT INFORMATION
  Report Type: 
  Country: None (occurrence: None)
  Receive Date: 20060815
  Receipt Date: 20060803
  Transmission Date: 20061208
  Serious: Yes (Hospitalization)
  Sender: FDA-Public Use
  Company Number: US-JNJFOC-20060801362

PATIENT
  Sex: Male

DRUGS (4)
  1. RISPERDAL [Suspect]
     Indication: DRUG USE FOR UNKNOWN INDICATION
  2. LAMICTAL [Interacting]
     Indication: EPILEPSY
     Route: 048
  3. PENTOBARBITAL CAP [Concomitant]
  4. PHENOBARBITAL TAB [Concomitant]

REACTIONS (6)
  - COMA [None]
  - DRUG INTERACTION [None]
  - HYPOXIA [None]
  - PSYCHOMOTOR HYPERACTIVITY [None]
  - RASH [None]
  - STATUS EPILEPTICUS [None]
